FAERS Safety Report 6910426-X (Version None)
Quarter: 2010Q3

REPORT INFORMATION
  Report Type: 
  Country: None (occurrence: None)
  Receive Date: 20100806
  Receipt Date: 20100727
  Transmission Date: 20110219
  Serious: Yes (Hospitalization)
  Sender: FDA-Public Use
  Company Number: FR-PFIZER INC-2010095051

PATIENT
  Age: 75 Year
  Sex: Male

DRUGS (10)
  1. SUTENT [Suspect]
     Indication: RENAL CANCER
     Dosage: 50 MG, 1X/DAY, CYCLIC, 4 WEEKS OUT OF 6
     Route: 048
     Dates: start: 20091001, end: 20100307
  2. ARIXTRA [Concomitant]
     Dosage: 5 MG
  3. CLONIDINE HCL [Concomitant]
     Dosage: ONE DAILY DOSAGE FORM
  4. AMLOR [Concomitant]
     Dosage: 10 MG PER DAY
  5. AMIODARONE [Concomitant]
     Dosage: 1 DF, CYCLIC, 5 DAYS OUT OF 7
  6. SPECIAFOLDINE [Concomitant]
     Dosage: ONE DAILY DOSAGE FORM
  7. ACETAMINOPHEN W/ PROPOXYPHENE HCL [Concomitant]
     Dosage: 2 TABLETS TWICE DAILY
  8. NOCTRAN 10 [Concomitant]
     Dosage: 1 DF, 1X/DAY IN THE EVENING
  9. PRIMPERAN TAB [Concomitant]
  10. NEXIUM [Concomitant]
     Dosage: 40 MG, 1X/DAY

REACTIONS (1)
  - GASTROINTESTINAL TOXICITY [None]
